FAERS Safety Report 9266593 (Version 1)
Quarter: 2013Q2

REPORT INFORMATION
  Report Type: Report from Study
  Country: US (occurrence: US)
  Receive Date: 20130502
  Receipt Date: 20130502
  Transmission Date: 20140414
  Serious: Yes (Hospitalization)
  Sender: FDA-Public Use
  Company Number: PHEH2013US009374

PATIENT
  Age: 62 Year
  Sex: Male

DRUGS (13)
  1. GLEEVEC [Suspect]
     Dosage: 400 MG, DAILY
     Route: 048
     Dates: start: 20130326, end: 20130419
  2. MVI [Concomitant]
     Dosage: UNK UKN, UNK
  3. VALIUM [Concomitant]
     Dosage: UNK UKN, UNK
  4. CHOLECALCIFEROL [Concomitant]
     Dosage: UNK UKN, UNK
  5. ASCORBIC ACID (VITAMIN C), PLAIN [Concomitant]
     Dosage: UNK UKN, UNK
  6. OMEPRAZOLE [Concomitant]
     Dosage: UNK UKN, UNK
  7. IRON [Concomitant]
     Dosage: UNK UKN, UNK
  8. SODIUM CHLORIDE [Concomitant]
     Dosage: UNK UKN, UNK
  9. NEUROTIN//ACETYLCARNITINE HYDROCHLORIDE [Concomitant]
     Dosage: UNK UKN, UNK
  10. HIPREX [Concomitant]
     Dosage: UNK UKN, UNK
  11. BACLOFEN [Concomitant]
     Dosage: UNK UKN, UNK
  12. ASA [Concomitant]
     Dosage: UNK UKN, UNK
  13. COLACE [Concomitant]
     Dosage: UNK UKN, UNK

REACTIONS (3)
  - Pneumothorax [Unknown]
  - Blood pressure abnormal [Unknown]
  - Oedema [Unknown]
